FAERS Safety Report 8113170-9 (Version None)
Quarter: 2012Q1

REPORT INFORMATION
  Report Type: 
  Country: None (occurrence: None)
  Receive Date: 20120203
  Receipt Date: 20120123
  Transmission Date: 20120608
  Serious: Yes (Hospitalization)
  Sender: FDA-Public Use
  Company Number: PHHY2011DE105215

PATIENT
  Sex: Female

DRUGS (8)
  1. CLOZAPINE [Suspect]
     Indication: SCHIZOPHRENIA
     Dosage: 275 MG /DAY
  2. HALDOL [Suspect]
     Dosage: 7.5 MG, QD
     Dates: start: 20110808
  3. HALDOL [Suspect]
     Dosage: 10 MG, QD
     Dates: start: 20110720
  4. HALDOL [Suspect]
     Dosage: UNK
     Dates: start: 19940101
  5. HALDOL [Suspect]
     Dosage: UNK
     Dates: start: 20110725
  6. HALDOL [Suspect]
     Dosage: 12.5 MG, QD
     Dates: start: 20110730
  7. HALDOL [Suspect]
     Dosage: 10 MG, QD
     Dates: start: 20110802
  8. HALDOL [Suspect]
     Dosage: 15 MG/ DAY
     Dates: start: 20110723

REACTIONS (8)
  - AKATHISIA [None]
  - HAEMORRHAGE [None]
  - THINKING ABNORMAL [None]
  - ABORTION [None]
  - RESTLESSNESS [None]
  - ACUTE PSYCHOSIS [None]
  - MATERNAL EXPOSURE DURING PREGNANCY [None]
  - DRUG INEFFECTIVE [None]
